FAERS Safety Report 8102532-1 (Version None)
Quarter: 2012Q1

REPORT INFORMATION
  Report Type: 
  Country: None (occurrence: None)
  Receive Date: 20120201
  Receipt Date: 20120124
  Transmission Date: 20120608
  Serious: Yes (Hospitalization)
  Sender: FDA-Public Use
  Company Number: US-SANOFI-AVENTIS-2012SA005020

PATIENT
  Sex: Female

DRUGS (3)
  1. LANTUS [Suspect]
     Indication: TYPE 2 DIABETES MELLITUS
     Dosage: LANTUS SOLOSTAR PRODUCT START DATE: ABBOUT 5 YEARS DOSE:15 UNIT(S)
     Route: 058
  2. LANTUS [Suspect]
     Dosage: DOSE:18 UNIT(S)
     Route: 058
  3. SOLOSTAR [Suspect]
     Indication: TYPE 2 DIABETES MELLITUS
     Dosage: LANTUS SOLOSTAR PRODUCT START DATE: ABBOUT 5 YEARS

REACTIONS (4)
  - CEREBRAL HAEMORRHAGE [None]
  - BLOOD GLUCOSE INCREASED [None]
  - FALL [None]
  - HYPOGLYCAEMIA [None]
